FAERS Safety Report 14782712 (Version 1)
Quarter: 2018Q2

REPORT INFORMATION
  Report Type: Spontaneous
  Country: FR (occurrence: FR)
  Receive Date: 20180420
  Receipt Date: 20180420
  Transmission Date: 20180711
  Serious: Yes (Other)
  Sender: FDA-Public Use
  Company Number: FR-MERCK KGAA-2046128

PATIENT
  Age: 48 Year
  Sex: Female

DRUGS (1)
  1. NOVOTHYROX [Suspect]
     Active Substance: LEVOTHYROXINE SODIUM
     Indication: PRODUCT USED FOR UNKNOWN INDICATION

REACTIONS (32)
  - Constipation [None]
  - Pain [None]
  - Family stress [None]
  - Asthenia [None]
  - Burning sensation [None]
  - Social avoidant behaviour [None]
  - Personal relationship issue [None]
  - Muscle contractions involuntary [None]
  - Abdominal pain upper [None]
  - Oropharyngeal pain [None]
  - Alopecia [None]
  - Weight increased [None]
  - Feeling abnormal [None]
  - Abdominal pain [None]
  - Hyperthyroidism [None]
  - Balance disorder [None]
  - Tremor [None]
  - Depression [None]
  - Stress [None]
  - Myalgia [None]
  - Muscle spasms [None]
  - Insomnia [None]
  - Hypothyroidism [None]
  - Weight decreased [None]
  - Fatigue [None]
  - Depressed mood [None]
  - Dizziness [None]
  - Mood altered [None]
  - Anxiety [None]
  - Emotional distress [None]
  - Apathy [None]
  - Blood thyroid stimulating hormone abnormal [None]

NARRATIVE: CASE EVENT DATE: 201706
